FAERS Safety Report 9378912 (Version 2)
Quarter: 2013Q3

REPORT INFORMATION
  Report Type: Spontaneous
  Country: US (occurrence: US)
  Receive Date: 20130702
  Receipt Date: 20130812
  Transmission Date: 20140515
  Serious: No
  Sender: FDA-Public Use
  Company Number: US-PFIZER INC-2013195221

PATIENT
  Age: 66 Year
  Sex: Male
  Weight: 90.7 kg

DRUGS (4)
  1. ADVIL [Suspect]
     Indication: PAIN
     Dosage: 800 MG (4 CAPSULES OF 200 MG), TWO TIMES A DAY
     Route: 048
     Dates: start: 201306
  2. ADVIL [Suspect]
     Indication: MUSCLE TIGHTNESS
  3. VICODIN [Suspect]
     Indication: NECK PAIN
     Dosage: TWO TABLETS OF 5/500 MG,THREE TIMES A DAY
     Route: 048
  4. ATENOLOL [Concomitant]
     Indication: BLOOD PRESSURE ABNORMAL
     Dosage: 50 MG, DAILY

REACTIONS (5)
  - Overdose [Unknown]
  - Fall [Unknown]
  - Dysstasia [Unknown]
  - Post procedural discharge [Unknown]
  - Drug ineffective [Unknown]
